FAERS Safety Report 9201478 (Version 2)
Quarter: 2013Q2

REPORT INFORMATION
  Report Type: Spontaneous
  Country: US (occurrence: US)
  Receive Date: 20130401
  Receipt Date: 20130531
  Transmission Date: 20140414
  Serious: No
  Sender: FDA-Public Use
  Company Number: US-ASTRAZENECA-2013SE18263

PATIENT
  Age: 24 Year
  Sex: Male
  Weight: 104.3 kg

DRUGS (1)
  1. SEROQUEL XR [Suspect]
     Indication: BIPOLAR I DISORDER
     Route: 048

REACTIONS (4)
  - Hypomania [Not Recovered/Not Resolved]
  - Panic reaction [Unknown]
  - Intentional drug misuse [Unknown]
  - Drug dose omission [Unknown]
